FAERS Safety Report 7438522-1 (Version None)
Quarter: 2011Q2

REPORT INFORMATION
  Report Type: 
  Country: None (occurrence: None)
  Receive Date: 20110426
  Receipt Date: 20110414
  Transmission Date: 20111010
  Serious: Yes (Hospitalization, Disabling, Other)
  Sender: FDA-Public Use
  Company Number: PHHY2011AU17119

PATIENT
  Sex: Female

DRUGS (10)
  1. PANTOPRAZOLE [Concomitant]
  2. MAGNESIUM [Concomitant]
  3. THYROXINE [Concomitant]
     Indication: HYPOTHYROIDISM
  4. GLEEVEC [Suspect]
     Indication: GASTROINTESTINAL STROMAL TUMOUR
     Dosage: 600 MG, UNK
     Route: 048
     Dates: start: 20050101, end: 20100101
  5. SUTENT [Concomitant]
     Indication: GASTROINTESTINAL STROMAL TUMOUR
     Dosage: 50 MG, DAILY
     Route: 048
     Dates: start: 20100701, end: 20101201
  6. FENTANYL [Concomitant]
  7. GLEEVEC [Suspect]
     Dosage: 800 MG, DAILY
     Route: 048
     Dates: start: 20110101, end: 20110201
  8. TEMAZEPAM [Concomitant]
  9. SERTRALINE [Concomitant]
  10. POTASSIUM [Concomitant]

REACTIONS (15)
  - FRACTURE [None]
  - GASTROINTESTINAL STROMAL TUMOUR [None]
  - METASTASES TO LIVER [None]
  - GENE MUTATION IDENTIFICATION TEST POSITIVE [None]
  - URINE OUTPUT DECREASED [None]
  - LETHARGY [None]
  - NEOPLASM MALIGNANT [None]
  - DRUG RESISTANCE [None]
  - OEDEMA PERIPHERAL [None]
  - ANAEMIA [None]
  - DRUG INTOLERANCE [None]
  - RENAL FAILURE ACUTE [None]
  - ASCITES [None]
  - OSTEOPOROSIS [None]
  - PULMONARY FIBROSIS [None]
